FAERS Safety Report 5726542-4 (Version None)
Quarter: 2008Q2

REPORT INFORMATION
  Report Type: 
  Country: None (occurrence: None)
  Receive Date: 20080502
  Receipt Date: 20080423
  Transmission Date: 20081010
  Serious: Yes (Hospitalization)
  Sender: FDA-Public Use
  Company Number: JP-MERCK-0804USA02256

PATIENT
  Age: 95 Year
  Sex: Female

DRUGS (7)
  1. COZAAR [Suspect]
     Indication: HYPERTENSION
     Route: 048
     Dates: start: 20061229, end: 20080406
  2. LANSOPRAZOLE [Concomitant]
     Route: 048
     Dates: start: 20051107
  3. MAGNESIUM OXIDE [Concomitant]
     Indication: CONSTIPATION
     Route: 048
     Dates: start: 20051107
  4. ALFAROL [Concomitant]
     Indication: OSTEOPOROSIS
     Route: 048
     Dates: start: 20000125
  5. AMOXAN [Concomitant]
     Indication: DEPRESSION
     Route: 048
     Dates: start: 20050911
  6. MADOPAR [Concomitant]
     Indication: PARKINSON'S DISEASE
     Route: 048
     Dates: start: 20050901
  7. [THERAPY UNSPECIFIED] [Concomitant]
     Route: 048
     Dates: start: 20040423

REACTIONS (3)
  - ANOREXIA [None]
  - CONVULSION [None]
  - HYPOGLYCAEMIA [None]
